FAERS Safety Report 5254318-3 (Version None)
Quarter: 2007Q1

REPORT INFORMATION
  Report Type: 
  Country: None (occurrence: None)
  Receive Date: 20070302
  Receipt Date: 20070219
  Transmission Date: 20070707
  Serious: Yes (Other)
  Sender: FDA-Public Use
  Company Number: HQWYE378122FEB07

PATIENT
  Age: 51 Year
  Sex: Male

DRUGS (4)
  1. SIROLIMUS [Suspect]
     Indication: IMMUNOSUPPRESSION
     Route: 065
  2. SIROLIMUS [Suspect]
     Dosage: MAINTENANCE DOSE ADJUSTED TO AIM AT A TROUGH LEVEL OF 12 UG/L
     Route: 065
  3. PREDNISOLONE [Concomitant]
     Indication: IMMUNOSUPPRESSANT DRUG THERAPY
     Route: 065
  4. MYCOPHENOLATE MOFETIL [Concomitant]
     Indication: IMMUNOSUPPRESSANT DRUG THERAPY
     Route: 065

REACTIONS (10)
  - ABDOMINAL PAIN UPPER [None]
  - BLOOD LACTATE DEHYDROGENASE INCREASED [None]
  - COLITIS [None]
  - EROSIVE DUODENITIS [None]
  - GASTRITIS [None]
  - HUMAN HERPESVIRUS 6 INFECTION [None]
  - OESOPHAGITIS [None]
  - PLATELET COUNT DECREASED [None]
  - RASH ERYTHEMATOUS [None]
  - THROMBOTIC MICROANGIOPATHY [None]
